FAERS Safety Report 8570736-X (Version None)
Quarter: 2012Q3

REPORT INFORMATION
  Report Type: 
  Country: None (occurrence: None)
  Receive Date: 20120805
  Receipt Date: 20120726
  Transmission Date: 20120928
  Serious: Yes (Hospitalization)
  Sender: FDA-Public Use
  Company Number: US-009507513-1207USA011420

PATIENT

DRUGS (3)
  1. RIBAVIRIN [Suspect]
     Dosage: UNK
     Route: 048
  2. PEGASYS [Suspect]
     Route: 058
  3. VICTRELIS [Suspect]
     Route: 048

REACTIONS (9)
  - MEMORY IMPAIRMENT [None]
  - RED BLOOD CELL COUNT DECREASED [None]
  - WHITE BLOOD CELL COUNT DECREASED [None]
  - TREMOR [None]
  - MALNUTRITION [None]
  - PLATELET COUNT DECREASED [None]
  - VOMITING [None]
  - NAUSEA [None]
  - DYSGEUSIA [None]
